FAERS Safety Report 6650386-2 (Version None)
Quarter: 2010Q1

REPORT INFORMATION
  Report Type: 
  Country: None (occurrence: None)
  Receive Date: 20100325
  Receipt Date: 20100319
  Transmission Date: 20100710
  Serious: Yes (Hospitalization)
  Sender: FDA-Public Use
  Company Number: CHPA2010US05458

PATIENT
  Age: 66 Year
  Sex: Female
  Weight: 68.027 kg

DRUGS (6)
  1. LAMISIL AT ATHLETE'S FOOT CREAM (NCH) [Suspect]
     Indication: ONYCHOMYCOSIS
     Dosage: UNK, QD
     Route: 061
     Dates: start: 20100101, end: 20100312
  2. LAMISIL AT ATHLETE'S FOOT CREAM (NCH) [Suspect]
     Indication: FUNGAL INFECTION
     Dosage: UNK, QD, PRN
     Route: 061
     Dates: start: 20090101, end: 20100101
  3. LOTRIMIN [Suspect]
     Indication: ONYCHOMYCOSIS
     Dosage: UNK, UNK
     Route: 061
     Dates: start: 20090101, end: 20100101
  4. IBUPROFEN [Concomitant]
     Indication: ARTHRALGIA
     Dosage: UNK, UNK
     Route: 048
  5. PRAVASTATIN [Concomitant]
     Indication: HYPERCHOLESTEROLAEMIA
     Dosage: UNK, UNK
     Route: 048
  6. BENADRYL [Concomitant]
     Indication: INSOMNIA
     Dosage: UNK, UNK
     Route: 048

REACTIONS (6)
  - ATRIAL FIBRILLATION [None]
  - COUGH [None]
  - INTENTIONAL DRUG MISUSE [None]
  - LOWER RESPIRATORY TRACT INFECTION [None]
  - MITRAL VALVE DISEASE [None]
  - OFF LABEL USE [None]
